FAERS Safety Report 5739784-9 (Version None)
Quarter: 2008Q2

REPORT INFORMATION
  Report Type: 
  Country: None (occurrence: None)
  Receive Date: 20080512
  Receipt Date: 20080512
  Transmission Date: 20081010
  Serious: Yes (Life-Threatening, Hospitalization, Other)
  Sender: FDA-Public Use
  Company Number: None

PATIENT
  Sex: Female
  Weight: 54.4316 kg

DRUGS (4)
  1. SEROQUEL [Suspect]
     Indication: DEMENTIA
     Dates: start: 20070614, end: 20080502
  2. HALDOL [Suspect]
     Indication: DEMENTIA
     Dates: start: 20070614, end: 20080502
  3. SEROQUEL [Concomitant]
  4. HALDOL [Concomitant]

REACTIONS (11)
  - AGGRESSION [None]
  - APHAGIA [None]
  - CONFUSIONAL STATE [None]
  - DRUG ABUSER [None]
  - DYSTONIA [None]
  - PAIN [None]
  - PSYCHOTIC DISORDER [None]
  - RASH GENERALISED [None]
  - SKIN DISCOLOURATION [None]
  - TARDIVE DYSKINESIA [None]
  - THERAPEUTIC AGENT TOXICITY [None]
